FAERS Safety Report 23309983 (Version 1)
Quarter: 2023Q4

REPORT INFORMATION
  Report Type: Spontaneous
  Country: CA (occurrence: CA)
  Receive Date: 20231218
  Receipt Date: 20231218
  Transmission Date: 20240110
  Serious: Yes (Other)
  Sender: FDA-Public Use
  Company Number: CA-MYLANLABS-2023M1132546

PATIENT
  Age: 33 Year
  Sex: Female

DRUGS (7)
  1. EPLERENONE [Suspect]
     Active Substance: EPLERENONE
     Indication: Primary hyperaldosteronism
     Dosage: 25 MILLIGRAM, BID, 2 EVERY 1 DAYS
     Route: 065
  2. NIFEDIPINE [Suspect]
     Active Substance: NIFEDIPINE
     Indication: Primary hyperaldosteronism
     Dosage: 60 MILLIGRAM, BID, 2 EVERY 1 DAYS
     Route: 065
  3. NIFEDIPINE [Suspect]
     Active Substance: NIFEDIPINE
     Indication: Hypertension
     Dosage: 30 MILLIGRAM, BID, 1 EVERY 12 HOURS
     Route: 065
  4. LABETALOL [Suspect]
     Active Substance: LABETALOL\LABETALOL HYDROCHLORIDE
     Indication: Hypertension
     Dosage: 200 MILLIGRAM, QID
     Route: 065
  5. LABETALOL [Suspect]
     Active Substance: LABETALOL\LABETALOL HYDROCHLORIDE
     Dosage: 100 MILLIGRAM, BID
     Route: 065
  6. POTASSIUM [Suspect]
     Active Substance: POTASSIUM
     Indication: Primary hyperaldosteronism
     Dosage: UNK (PARENTERAL)
     Route: 065
  7. POTASSIUM [Suspect]
     Active Substance: POTASSIUM
     Indication: Hypokalaemia
     Dosage: UNK
     Route: 048

REACTIONS (2)
  - Premature delivery [Unknown]
  - Maternal exposure during pregnancy [Recovered/Resolved]
